FAERS Safety Report 7406067-0 (Version None)
Quarter: 2011Q2

REPORT INFORMATION
  Report Type: 
  Country: None (occurrence: None)
  Receive Date: 20110411
  Receipt Date: 20110331
  Transmission Date: 20111010
  Serious: Yes (Other)
  Sender: FDA-Public Use
  Company Number: B0710765A

PATIENT
  Age: 64 Year
  Sex: Female

DRUGS (1)
  1. ZOVIRAX [Suspect]
     Indication: MENINGITIS
     Dosage: 30MGK PER DAY
     Route: 042
     Dates: start: 20110325, end: 20110327

REACTIONS (3)
  - RENAL DISORDER [None]
  - ENCEPHALITIS [None]
  - ENCEPHALOPATHY [None]
